FAERS Safety Report 4763336-0 (Version None)
Quarter: 2005Q3

REPORT INFORMATION
  Report Type: 
  Country: None (occurrence: None)
  Receive Date: 20050902
  Receipt Date: 20050822
  Transmission Date: 20060218
  Serious: Yes (Other)
  Sender: FDA-Public Use
  Company Number: 12206

PATIENT
  Age: 47 Year
  Sex: Female
  Weight: 86.1834 kg

DRUGS (2)
  1. PACLITAXEL [Suspect]
     Indication: BREAST CANCER
     Dosage: 330 MG PER_CYCLE IV
     Route: 042
     Dates: start: 20050505
  2. PACLITAXEL [Suspect]
     Indication: BREAST CANCER
     Dates: start: 20050428

REACTIONS (3)
  - CHEST DISCOMFORT [None]
  - DYSPEPSIA [None]
  - FLUSHING [None]
